FAERS Safety Report 12981990 (Version 2)
Quarter: 2016Q4

REPORT INFORMATION
  Report Type: Spontaneous
  Country: FR (occurrence: FR)
  Receive Date: 20161129
  Receipt Date: 20161201
  Transmission Date: 20170207
  Serious: Yes (Other)
  Sender: FDA-Public Use
  Company Number: FR-B.I. PHARMACEUTICALS,INC./RIDGEFIELD-2016-BI-081284

PATIENT
  Age: 65 Year
  Sex: Female

DRUGS (4)
  1. MORPHINE [Suspect]
     Active Substance: MORPHINE
     Indication: SPINAL ANAESTHESIA
     Dosage: STRENGTH:  0.1MG/ML
     Route: 037
     Dates: start: 201611
  2. CATAPRESSAN [Suspect]
     Active Substance: CLONIDINE
     Indication: SPINAL ANAESTHESIA
     Route: 037
     Dates: start: 201611
  3. SUFENTANIL MYLAN [Suspect]
     Active Substance: SUFENTANIL
     Indication: SPINAL ANAESTHESIA
     Route: 037
     Dates: start: 201611
  4. BUPIVACAINE AGUETTANT [Suspect]
     Active Substance: BUPIVACAINE HYDROCHLORIDE
     Indication: SPINAL ANAESTHESIA
     Dosage: STRENGTH: 0.5%
     Route: 037
     Dates: start: 201611

REACTIONS (1)
  - Respiratory distress [Recovered/Resolved]

NARRATIVE: CASE EVENT DATE: 201611
